FAERS Safety Report 13959176 (Version 2)
Quarter: 2017Q4

REPORT INFORMATION
  Report Type: Report from Study
  Country: IT (occurrence: IT)
  Receive Date: 20170911
  Receipt Date: 20171102
  Transmission Date: 20180320
  Serious: Yes (Hospitalization)
  Sender: FDA-Public Use
  Company Number: IT-TAIHO ONCOLOGY INC-US-2017-00224

PATIENT
  Age: 49 Year
  Sex: Male

DRUGS (1)
  1. TAS-102 [Suspect]
     Active Substance: TIPIRACIL HYDROCHLORIDE\TRIFLURIDINE
     Indication: ADENOCARCINOMA GASTRIC
     Dosage: CURRENT CYCLE 4 STARTED ON 09 AUGUST 2017
     Route: 048
     Dates: start: 20170515

REACTIONS (2)
  - Diarrhoea [Recovered/Resolved]
  - White blood cell count decreased [Recovered/Resolved]

NARRATIVE: CASE EVENT DATE: 20170809
